FAERS Safety Report 11125612 (Version 1)
Quarter: 2015Q2

REPORT INFORMATION
  Report Type: Spontaneous
  Country: US (occurrence: US)
  Receive Date: 20150520
  Receipt Date: 20150520
  Transmission Date: 20150821
  Serious: No
  Sender: FDA-Public Use
  Company Number: US-009507513-1504USA024357

PATIENT
  Age: 20 Year
  Sex: Female
  Weight: 68.93 kg

DRUGS (1)
  1. NEXPLANON [Suspect]
     Active Substance: ETONOGESTREL
     Indication: CONTRACEPTION
     Dosage: 1 ROD / THREE YEARS
     Route: 059
     Dates: start: 20140814, end: 20141014

REACTIONS (5)
  - Implant site swelling [Recovered/Resolved]
  - Implant site pain [Recovered/Resolved]
  - Device expulsion [Recovered/Resolved]
  - Implant site infection [Recovered/Resolved]
  - Implant site erythema [Recovered/Resolved]

NARRATIVE: CASE EVENT DATE: 2014
